FAERS Safety Report 9737498 (Version 2)
Quarter: 2013Q4

REPORT INFORMATION
  Report Type: Spontaneous
  Country: FR (occurrence: FR)
  Receive Date: 20131206
  Receipt Date: 20131223
  Transmission Date: 20140711
  Serious: Yes (Hospitalization)
  Sender: FDA-Public Use
  Company Number: FR-ASTRAZENECA-2013SE88997

PATIENT
  Age: 28314 Day
  Sex: Female

DRUGS (6)
  1. BRILIQUE [Suspect]
     Indication: MYOCARDIAL INFARCTION
     Route: 048
     Dates: start: 20131108, end: 20131123
  2. KARDEGIC [Concomitant]
     Dosage: LONG LASTING TREATMENT
  3. IODINE [Concomitant]
  4. IODINE [Concomitant]
     Dates: start: 20131121, end: 20131121
  5. CORTICOIDS [Concomitant]
     Indication: SJOGREN^S SYNDROME
     Dosage: LONG LASTING TREATMENT
  6. OTHER TREATMENTS [Concomitant]
     Dosage: FOR SEVERAL YEARS

REACTIONS (8)
  - Erythema [Recovered/Resolved]
  - Hypotension [Recovering/Resolving]
  - Anuria [Recovering/Resolving]
  - Pruritus [Recovered/Resolved]
  - Hypersensitivity [Recovered/Resolved]
  - Blood creatinine increased [Recovering/Resolving]
  - Dizziness [Recovered/Resolved]
  - Nausea [Recovered/Resolved]
